FAERS Safety Report 4987631-5 (Version None)
Quarter: 2006Q2

REPORT INFORMATION
  Report Type: 
  Country: None (occurrence: None)
  Receive Date: 20060424
  Receipt Date: 20060406
  Transmission Date: 20061013
  Serious: Yes (Hospitalization, Other)
  Sender: FDA-Public Use
  Company Number: US200603005773

PATIENT
  Age: 74 Year
  Sex: Male
  Weight: 83.9 kg

DRUGS (3)
  1. GEMZAR [Suspect]
     Indication: NON-SMALL CELL LUNG CANCER
     Dosage: 1000 MG/M2
     Dates: start: 20060201, end: 20060313
  2. CARBOPLATIN [Concomitant]
  3. PREDNISONE TAB [Concomitant]

REACTIONS (3)
  - DYSPNOEA [None]
  - LUNG INFILTRATION [None]
  - RASH [None]
